FAERS Safety Report 9298009 (Version 1)
Quarter: 2013Q2

REPORT INFORMATION
  Report Type: Spontaneous
  Country: US (occurrence: US)
  Receive Date: 20130520
  Receipt Date: 20130520
  Transmission Date: 20140414
  Serious: Yes (Death)
  Sender: FDA-Public Use
  Company Number: US-JNJFOC-20130510563

PATIENT
  Age: 6 Month
  Sex: Male

DRUGS (5)
  1. DOXORUBICIN [Suspect]
     Indication: RHABDOID TUMOUR OF THE KIDNEY
     Route: 042
  2. IFOSPHAMIDE [Suspect]
     Indication: RHABDOID TUMOUR OF THE KIDNEY
     Route: 065
  3. VINCRISTINE [Suspect]
     Indication: RHABDOID TUMOUR OF THE KIDNEY
     Route: 065
  4. CYCLOPHOSPHAMIDE [Suspect]
     Indication: RHABDOID TUMOUR OF THE KIDNEY
     Route: 065
  5. METHOTREXATE [Suspect]
     Indication: RHABDOID TUMOUR OF THE KIDNEY
     Dosage: HIGH DOSE
     Route: 065

REACTIONS (3)
  - Rhabdoid tumour of the kidney [Fatal]
  - Off label use [Unknown]
  - Malignant neoplasm progression [None]
